FAERS Safety Report 10242968 (Version 1)
Quarter: 2014Q2

REPORT INFORMATION
  Report Type: Spontaneous
  Country: BR (occurrence: BR)
  Receive Date: 20140618
  Receipt Date: 20140618
  Transmission Date: 20141212
  Serious: Yes (Other)
  Sender: FDA-Public Use
  Company Number: 2013SP000944

PATIENT
  Age: 41 Year
  Sex: Female
  Weight: 52 kg

DRUGS (9)
  1. METHOTREXATE [Suspect]
     Indication: RHEUMATOID ARTHRITIS
     Route: 058
     Dates: start: 2010, end: 201205
  2. ETANERCEPT [Suspect]
     Indication: RHEUMATOID ARTHRITIS
     Route: 058
     Dates: start: 201004, end: 201109
  3. ETANERCEPT [Suspect]
     Indication: RHEUMATOID ARTHRITIS
     Route: 058
     Dates: start: 20111002
  4. ETANERCEPT [Suspect]
     Indication: RHEUMATOID ARTHRITIS
     Route: 058
     Dates: start: 201211
  5. ETANERCEPT [Suspect]
     Indication: RHEUMATOID ARTHRITIS
     Route: 058
     Dates: start: 201306
  6. ETANERCEPT [Suspect]
     Indication: RHEUMATOID ARTHRITIS
     Route: 058
  7. ETANERCEPT [Suspect]
     Indication: RHEUMATOID ARTHRITIS
     Route: 058
  8. LEFLUNOMIDE [Concomitant]
  9. ESTROGEN NOS W/NORELGESTROMIN [Concomitant]

REACTIONS (17)
  - Rheumatoid arthritis [Recovering/Resolving]
  - Arthralgia [Unknown]
  - Pain in extremity [Unknown]
  - Neck pain [Unknown]
  - Back pain [Unknown]
  - Myocardial infarction [Unknown]
  - Nausea [Unknown]
  - Weight decreased [Unknown]
  - Injection site pain [Unknown]
  - Injection site swelling [Unknown]
  - Injection site pruritus [Unknown]
  - Injection site haematoma [Unknown]
  - Dizziness [Recovered/Resolved]
  - Pain [Recovered/Resolved]
  - Tuberculin test [Unknown]
  - Wheezing [Unknown]
  - Hyperaesthesia [Unknown]
